FAERS Safety Report 11417621 (Version 3)
Quarter: 2015Q4

REPORT INFORMATION
  Report Type: Spontaneous
  Country: GB (occurrence: GB)
  Receive Date: 20150825
  Receipt Date: 20151127
  Transmission Date: 20160304
  Serious: Yes (Death, Hospitalization)
  Sender: FDA-Public Use
  Company Number: PHHY2015GB098641

PATIENT
  Age: 65 Year
  Sex: Male
  Weight: 99 kg

DRUGS (6)
  1. METHOTREXATE [Suspect]
     Active Substance: METHOTREXATE
     Indication: PRODUCT USED FOR UNKNOWN INDICATION
     Dosage: 25 MG, QW
     Route: 030
     Dates: start: 2010
  2. LEVOTHYROXINE. [Concomitant]
     Active Substance: LEVOTHYROXINE
     Indication: PRODUCT USED FOR UNKNOWN INDICATION
     Dosage: 1 DF, QD
     Route: 065
     Dates: start: 20141117
  3. FOLIC ACID. [Concomitant]
     Active Substance: FOLIC ACID
     Indication: PRODUCT USED FOR UNKNOWN INDICATION
     Dosage: 1 DF, QW3
     Route: 065
     Dates: start: 20141117
  4. HYDROXYCHLOROQUINE SULFATE. [Concomitant]
     Active Substance: HYDROXYCHLOROQUINE SULFATE
     Indication: PRODUCT USED FOR UNKNOWN INDICATION
     Dosage: 2 DF, QD
     Route: 065
     Dates: start: 20141117
  5. FULTIUM [Concomitant]
     Indication: PRODUCT USED FOR UNKNOWN INDICATION
     Dosage: 1 DF, QD
     Route: 065
     Dates: start: 20141117
  6. LEFLUNOMIDE. [Suspect]
     Active Substance: LEFLUNOMIDE
     Indication: PRODUCT USED FOR UNKNOWN INDICATION
     Route: 065

REACTIONS (2)
  - Pneumonitis [Fatal]
  - Pulmonary fibrosis [Fatal]

NARRATIVE: CASE EVENT DATE: 20150421
